FAERS Safety Report 8576546-1 (Version None)
Quarter: 2012Q3

REPORT INFORMATION
  Report Type: 
  Country: None (occurrence: None)
  Receive Date: 20120807
  Receipt Date: 20120730
  Transmission Date: 20120928
  Serious: Yes (Hospitalization, Other)
  Sender: FDA-Public Use
  Company Number: US-JNJFOC-20120800375

PATIENT
  Age: 21 Year
  Sex: Male

DRUGS (3)
  1. CONCERTA [Suspect]
     Route: 048
  2. CONCERTA [Suspect]
     Route: 048
     Dates: start: 20120601, end: 20120720
  3. CONCERTA [Suspect]
     Indication: ATTENTION DEFICIT/HYPERACTIVITY DISORDER
     Route: 048
     Dates: start: 20120723

REACTIONS (4)
  - MENTAL STATUS CHANGES [None]
  - ABNORMAL BEHAVIOUR [None]
  - FATIGUE [None]
  - UNRESPONSIVE TO STIMULI [None]
